FAERS Safety Report 16464631 (Version 1)
Quarter: 2019Q2

REPORT INFORMATION
  Report Type: Spontaneous
  Country: SI (occurrence: SI)
  Receive Date: 20190621
  Receipt Date: 20190621
  Transmission Date: 20190711
  Serious: Yes (Life-Threatening, Hospitalization)
  Sender: FDA-Public Use
  Company Number: SI-BAYER-2019-115863

PATIENT
  Age: 23 Year
  Sex: Female
  Weight: 65 kg

DRUGS (1)
  1. GADOVIST [Suspect]
     Active Substance: GADOBUTROL
     Indication: PRODUCT USED FOR UNKNOWN INDICATION
     Dosage: 7.5 ML, ONCE
     Route: 042
     Dates: start: 20190606, end: 20190606

REACTIONS (3)
  - Asphyxia [Unknown]
  - Paraesthesia mucosal [Unknown]
  - Laryngeal disorder [Unknown]

NARRATIVE: CASE EVENT DATE: 20190606
